FAERS Safety Report 8922106 (Version 1)
Quarter: 2012Q4

REPORT INFORMATION
  Report Type: 
  Country: ES (occurrence: ES)
  Receive Date: 20121123
  Receipt Date: 20121123
  Transmission Date: 20130627
  Serious: Yes (Other)
  Sender: FDA-Public Use
  Company Number: PHHY2012ES107301

PATIENT
  Age: 36 Year
  Sex: Female
  Weight: 69 kg

DRUGS (8)
  1. OMEPRAZOLE [Suspect]
     Indication: PROPHYLAXIS
     Dosage: 1 DF, QD
     Route: 048
     Dates: start: 20120309
  2. OMEPRAZOLE [Suspect]
     Dosage: 1 DF, QD
     Route: 048
     Dates: start: 20120318
  3. OMEPRAZOLE [Suspect]
     Dosage: 1 DF, QD
     Route: 048
     Dates: start: 20120328
  4. XERISTAR [Concomitant]
     Indication: ANXIETY
     Route: 048
     Dates: start: 201110
  5. VALIUM [Concomitant]
     Indication: ANXIETY
     Route: 048
     Dates: start: 201109
  6. VOLTAREN [Concomitant]
     Indication: PAIN
     Route: 048
     Dates: start: 201103
  7. VOLTAREN [Concomitant]
     Indication: PALINDROMIC RHEUMATISM
  8. ARCOXIA [Concomitant]
     Indication: PALINDROMIC RHEUMATISM
     Dosage: 1 DF, Q48H
     Route: 048
     Dates: start: 201103

REACTIONS (8)
  - Hypotension [Recovered/Resolved]
  - Chills [Recovered/Resolved]
  - Generalised erythema [Recovered/Resolved]
  - Pruritus generalised [Recovered/Resolved]
  - Tongue pruritus [Recovered/Resolved]
  - Dizziness [Recovered/Resolved]
  - Diarrhoea [Recovered/Resolved]
  - Vomiting [Recovered/Resolved]
